FAERS Safety Report 6611835-9 (Version None)
Quarter: 2010Q1

REPORT INFORMATION
  Report Type: 
  Country: None (occurrence: None)
  Receive Date: 20100303
  Receipt Date: 20100225
  Transmission Date: 20100710
  Serious: Yes (Hospitalization)
  Sender: FDA-Public Use
  Company Number: CH-ROCHE-687681

PATIENT
  Age: 48 Year
  Sex: Male

DRUGS (3)
  1. PEGASYS [Suspect]
     Dosage: DURATION OF USE REPORTED: LONG-TERM; FORM: INJECTION; EVERY FRIDAY
     Route: 058
  2. COPEGUS [Suspect]
     Dosage: DURATION OF USE REPORTED: LONG-TERM
     Route: 048
  3. ZOLPIDEM [Suspect]
     Indication: INSOMNIA
     Dosage: DOSE: TEN TABLETS
     Route: 048
     Dates: start: 20091111, end: 20091111

REACTIONS (2)
  - CONFUSIONAL STATE [None]
  - ILL-DEFINED DISORDER [None]
